FAERS Safety Report 14348493 (Version 1)
Quarter: 2018Q1

REPORT INFORMATION
  Report Type: Spontaneous
  Country: US (occurrence: US)
  Receive Date: 20180103
  Receipt Date: 20180103
  Transmission Date: 20180509
  Serious: Yes (Death, Other)
  Sender: FDA-Public Use
  Company Number: US-009507513-1801USA000495

PATIENT
  Age: 53 Year
  Sex: Female

DRUGS (6)
  1. PREGABALIN. [Suspect]
     Active Substance: PREGABALIN
  2. GLIMEPIRIDE. [Suspect]
     Active Substance: GLIMEPIRIDE
  3. ATORVASTATIN [Suspect]
     Active Substance: ATORVASTATIN
  4. PRINIVIL [Suspect]
     Active Substance: LISINOPRIL
     Route: 048
  5. POTASSIUM CHLORIDE. [Suspect]
     Active Substance: POTASSIUM CHLORIDE
  6. REMERON [Suspect]
     Active Substance: MIRTAZAPINE
     Route: 048

REACTIONS (1)
  - Death [Fatal]
